FAERS Safety Report 7808584-8 (Version None)
Quarter: 2011Q4

REPORT INFORMATION
  Report Type: 
  Country: None (occurrence: None)
  Receive Date: 20111012
  Receipt Date: 20111006
  Transmission Date: 20120403
  Serious: No
  Sender: FDA-Public Use
  Company Number: US-PFIZER INC-2011239303

PATIENT
  Sex: Female
  Weight: 58.05 kg

DRUGS (1)
  1. DETROL LA [Suspect]
     Indication: POLLAKIURIA
     Dosage: 4 MG, 1X/DAY
     Route: 048

REACTIONS (1)
  - DRUG INEFFECTIVE [None]
